FAERS Safety Report 8721012 (Version 2)
Quarter: 2012Q4

REPORT INFORMATION
  Report Type: Report from Study
  Country: CA (occurrence: CA)
  Receive Date: 20120813
  Receipt Date: 20120831
  Transmission Date: 20130627
  Serious: Yes (Hospitalization, Other)
  Sender: FDA-Public Use
  Company Number: CA-ABBOTT-12P-028-0965414-00

PATIENT
  Sex: Male

DRUGS (6)
  1. KALETRA [Suspect]
     Indication: HIV INFECTION
     Route: 048
     Dates: start: 20080909
  2. SEPTRA [Suspect]
     Indication: ANTIFUNGAL PROPHYLAXIS
     Dates: start: 201201
  3. TRUVADA [Concomitant]
     Dosage: 200/300 1 in 1 day
  4. FERROUS FUMARATE [Concomitant]
     Route: 048
  5. LEVETIRACETAM [Concomitant]
     Route: 048
  6. PARIET [Concomitant]
     Route: 048

REACTIONS (9)
  - Meningioma benign [Recovered/Resolved]
  - Pneumonia [Unknown]
  - Pleural effusion [Recovered/Resolved]
  - Pulmonary tuberculosis [Recovering/Resolving]
  - Weight decreased [Unknown]
  - Cough [Recovering/Resolving]
  - Neutropenia [Recovering/Resolving]
  - Upper-airway cough syndrome [Recovering/Resolving]
  - Intracranial pressure increased [Unknown]
